FAERS Safety Report 19962209 (Version 2)
Quarter: 2022Q1

REPORT INFORMATION
  Report Type: Spontaneous
  Country: US (occurrence: US)
  Receive Date: 20211018
  Receipt Date: 20220118
  Transmission Date: 20220423
  Serious: Yes (Death, Other)
  Sender: FDA-Public Use
  Company Number: US-EXELIXIS-CABO-21041353

PATIENT
  Age: 52 Year
  Sex: Female

DRUGS (2)
  1. OPDIVO [Suspect]
     Active Substance: NIVOLUMAB
     Indication: Ovarian cancer
     Dosage: UNK
     Route: 065
  2. CABOMETYX [Suspect]
     Active Substance: CABOZANTINIB S-MALATE
     Indication: Ovarian cancer
     Dosage: 40 MG, QD
     Route: 065
     Dates: start: 20210521

REACTIONS (1)
  - Death [Fatal]

NARRATIVE: CASE EVENT DATE: 20210801
